FAERS Safety Report 15315451 (Version 1)
Quarter: 2018Q3

REPORT INFORMATION
  Report Type: Spontaneous
  Country: US (occurrence: US)
  Receive Date: 20180824
  Receipt Date: 20180824
  Transmission Date: 20181010
  Serious: No
  Sender: FDA-Public Use
  Company Number: US-SA-2018SA211788

PATIENT
  Sex: Female

DRUGS (2)
  1. ALIROCUMAB PREFILLED PEN [Suspect]
     Active Substance: ALIROCUMAB
     Dosage: UNK, QOW
     Dates: start: 201807, end: 201807
  2. PRALUENT [Suspect]
     Active Substance: ALIROCUMAB
     Dosage: UNK UNK, 1X
     Dates: start: 201807, end: 201807

REACTIONS (2)
  - Injection site haemorrhage [Unknown]
  - Injury associated with device [Unknown]

NARRATIVE: CASE EVENT DATE: 201807
